FAERS Safety Report 5350536-4 (Version None)
Quarter: 2007Q2

REPORT INFORMATION
  Report Type: 
  Country: None (occurrence: None)
  Receive Date: 20070606
  Receipt Date: 20070523
  Transmission Date: 20071010
  Serious: Yes (Hospitalization)
  Sender: FDA-Public Use
  Company Number: 2007SI004785

PATIENT
  Age: 52 Year
  Sex: Male

DRUGS (2)
  1. INDOMETHACIN [Suspect]
     Indication: ANKYLOSING SPONDYLITIS
     Dosage: 250 MG; DAILY; ORAL
     Route: 048
  2. INDOMETHACIN [Suspect]
     Indication: PAIN
     Dosage: 250 MG; DAILY; ORAL
     Route: 048

REACTIONS (4)
  - ENTERITIS [None]
  - INFLAMMATION [None]
  - INTESTINAL ULCER PERFORATION [None]
  - SMALL INTESTINAL OBSTRUCTION [None]
